FAERS Safety Report 24988746 (Version 1)
Quarter: 2025Q1

REPORT INFORMATION
  Report Type: Spontaneous
  Country: CN (occurrence: CN)
  Receive Date: 20250220
  Receipt Date: 20250220
  Transmission Date: 20250409
  Serious: Yes (Hospitalization, Other)
  Sender: AMGEN
  Company Number: CN-AMGEN-CHNSP2025029457

PATIENT
  Age: 36 Year
  Sex: Female

DRUGS (10)
  1. PEGFILGRASTIM [Suspect]
     Active Substance: PEGFILGRASTIM
     Indication: White blood cell count decreased
     Route: 065
     Dates: start: 202405
  2. DOXORUBICIN [Concomitant]
     Active Substance: DOXORUBICIN
  3. CYCLOPHOSPHAMIDE [Concomitant]
     Active Substance: CYCLOPHOSPHAMIDE
  4. MOXIFLOXACIN [Concomitant]
     Active Substance: MOXIFLOXACIN
     Dosage: 0.4 GRAM, QD
     Route: 065
     Dates: start: 202405
  5. ACETYLCYSTEINE [Concomitant]
     Active Substance: ACETYLCYSTEINE
     Indication: Productive cough
     Dates: start: 202405
  6. AMBROXOL [Concomitant]
     Active Substance: AMBROXOL
     Indication: Productive cough
     Route: 065
     Dates: start: 202405
  7. DOXOFYLLINE [Concomitant]
     Active Substance: DOXOFYLLINE
     Indication: Bronchial disorder
     Dates: start: 202405
  8. TERBUTALINE [Concomitant]
     Active Substance: TERBUTALINE
     Indication: Prophylaxis
     Dates: start: 202405
  9. METHYLPREDNISOLONE SODIUM SUCCINATE [Concomitant]
     Active Substance: METHYLPREDNISOLONE SODIUM SUCCINATE
     Indication: Antiinflammatory therapy
     Dosage: 40 MILLIGRAM, QD,ADJUSTED TO 20 MG ONCE DAILY
     Route: 065
  10. MISOPROSTOL [Concomitant]
     Active Substance: MISOPROSTOL
     Indication: Prophylaxis

REACTIONS (8)
  - Pneumocystis jirovecii pneumonia [Unknown]
  - Pneumonia staphylococcal [Unknown]
  - Epstein-Barr viraemia [Unknown]
  - Asthma [Recovering/Resolving]
  - Palpitations [Unknown]
  - Alanine aminotransferase increased [Unknown]
  - Gamma-glutamyltransferase increased [Unknown]
  - Insomnia [Unknown]

NARRATIVE: CASE EVENT DATE: 20240101
